FAERS Safety Report 19899178 (Version 1)
Quarter: 2021Q3

REPORT INFORMATION
  Report Type: Spontaneous
  Country: US (occurrence: US)
  Receive Date: 20210929
  Receipt Date: 20210929
  Transmission Date: 20211014
  Serious: No
  Sender: FDA-Public Use
  Company Number: None

PATIENT
  Age: 27 Year
  Sex: Female
  Weight: 113.4 kg

DRUGS (1)
  1. REGEN?COV [Suspect]
     Active Substance: CASIRIVIMAB\IMDEVIMAB
     Indication: COVID-19
     Dosage: ?          OTHER FREQUENCY:ONCE;?
     Route: 041
     Dates: start: 20210927, end: 20210927

REACTIONS (7)
  - Chest discomfort [None]
  - Flushing [None]
  - Headache [None]
  - Blood pressure increased [None]
  - Heart rate increased [None]
  - Chills [None]
  - Nausea [None]

NARRATIVE: CASE EVENT DATE: 20210927
